FAERS Safety Report 19270658 (Version 1)
Quarter: 2021Q2

REPORT INFORMATION
  Report Type: Spontaneous
  Country: CH (occurrence: CH)
  Receive Date: 20210518
  Receipt Date: 20210518
  Transmission Date: 20210717
  Serious: Yes (Death, Life-Threatening, Hospitalization, Other)
  Sender: FDA-Public Use
  Company Number: CH-PFIZER INC-2021506528

PATIENT
  Age: 92 Year
  Sex: Male

DRUGS (16)
  1. TAMSULOSIN MEPHA [Concomitant]
     Dosage: UNK
     Route: 048
     Dates: start: 2019, end: 20210209
  2. ASPIRIN CARDIO [Suspect]
     Active Substance: ASPIRIN
     Dosage: UNK
     Route: 048
     Dates: start: 2015, end: 20210210
  3. SPIRIVA [Concomitant]
     Active Substance: TIOTROPIUM BROMIDE MONOHYDRATE
     Dosage: 18 UG
     Route: 055
     Dates: start: 2015, end: 20210209
  4. BALDRIPARAN [CRATAEGUS LAEVIGATA DRY EXTRACT;HUMULUS LUPULUS DRY EXTRA [Concomitant]
     Dosage: UNK
     Route: 048
     Dates: start: 20210205, end: 20210208
  5. ZYLORIC [Concomitant]
     Active Substance: ALLOPURINOL
     Dosage: 100 MG
     Route: 048
     Dates: start: 20210205, end: 20210210
  6. FRAGMIN [Suspect]
     Active Substance: DALTEPARIN SODIUM
     Dosage: 5000 IE/0.2ML
     Route: 058
     Dates: start: 20210202, end: 20210208
  7. CONCOR [Concomitant]
     Active Substance: BISOPROLOL FUMARATE
     Dosage: 2.5 MG
     Route: 048
     Dates: start: 2019, end: 20210209
  8. ACIDUM FOLICUM [Concomitant]
     Active Substance: FOLIC ACID
     Dosage: 5 MG
     Route: 048
     Dates: start: 20210204, end: 20210210
  9. QUETIAPIN SANDOZ [Concomitant]
     Active Substance: QUETIAPINE
     Dosage: UNK
     Route: 048
     Dates: start: 2019, end: 20210209
  10. VITAMIN B12 AMINO [Concomitant]
     Active Substance: CYANOCOBALAMIN
     Dosage: UNK
     Route: 058
     Dates: start: 20210204, end: 20210207
  11. LASIX [Concomitant]
     Active Substance: FUROSEMIDE
     Dosage: UNK
     Route: 042
     Dates: start: 20210204, end: 20210205
  12. DANCOR [Suspect]
     Active Substance: NICORANDIL
     Dosage: UNK
     Route: 048
     Dates: start: 2018, end: 20210202
  13. ISOKET [Concomitant]
     Active Substance: ISOSORBIDE DINITRATE
     Dosage: 20 MG
     Route: 048
     Dates: start: 2018, end: 20210202
  14. TEBOKAN [Concomitant]
     Active Substance: GINKGO
     Dosage: 120 MG
     Route: 048
     Dates: start: 2015, end: 20210202
  15. TOREM [TORASEMIDE] [Concomitant]
     Active Substance: TORSEMIDE
     Dosage: 10 MG
     Route: 048
     Dates: start: 2019, end: 20210209
  16. SYMBICORT [Concomitant]
     Active Substance: BUDESONIDE\FORMOTEROL FUMARATE DIHYDRATE
     Dosage: UNK
     Route: 055
     Dates: start: 2015, end: 20210210

REACTIONS (2)
  - Gastrointestinal haemorrhage [Fatal]
  - Shock haemorrhagic [Fatal]

NARRATIVE: CASE EVENT DATE: 20210209
